FAERS Safety Report 8770095 (Version 1)
Quarter: 2012Q4

REPORT INFORMATION
  Report Type: 
  Country: JP (occurrence: JP)
  Receive Date: 20120905
  Receipt Date: 20120905
  Transmission Date: 20130627
  Serious: Yes (Other)
  Sender: FDA-Public Use
  Company Number: JP-009507513-1209JPN000573

PATIENT

DRUGS (4)
  1. REFLEX [Suspect]
     Indication: DEPRESSIVE SYMPTOM
     Dosage: 15 mg, qd
     Route: 048
     Dates: start: 20120806, end: 20120815
  2. REFLEX [Suspect]
     Indication: INSOMNIA
     Dosage: 30 mg, qd
     Route: 048
     Dates: start: 20120816, end: 20120828
  3. ETIZOLAM [Concomitant]
     Dosage: 3 mg, qd
     Route: 048
     Dates: start: 201206, end: 20120828
  4. ESTAZOLAM [Concomitant]
     Dosage: 1 mg, qd
     Route: 048
     Dates: start: 201206, end: 20120828

REACTIONS (1)
  - Convulsion [Recovering/Resolving]
